FAERS Safety Report 19304755 (Version 5)
Quarter: 2021Q2

REPORT INFORMATION
  Report Type: Spontaneous
  Country: GB (occurrence: GB)
  Receive Date: 20210526
  Receipt Date: 20210618
  Transmission Date: 20210717
  Serious: Yes (Other)
  Sender: FDA-Public Use
  Company Number: GB-SUN PHARMACEUTICAL INDUSTRIES LTD-2021RR-297886

PATIENT
  Age: 68 Year
  Sex: Female

DRUGS (8)
  1. ATORVASTATIN [Suspect]
     Active Substance: ATORVASTATIN
     Indication: PRODUCT USED FOR UNKNOWN INDICATION
     Dosage: 80 MILLIGRAM, DAILY, QD
     Route: 065
  2. CLOZARIL [Suspect]
     Active Substance: CLOZAPINE
     Indication: SCHIZOPHRENIA
     Dosage: 225 MG, UNK
     Route: 048
     Dates: start: 20100602
  3. HYDROXYCARBAMIDE [Suspect]
     Active Substance: HYDROXYUREA
     Indication: POLYCYTHAEMIA
     Dosage: 1 GRAM, DAILY, QD
     Route: 065
  4. LACTULOSE. [Suspect]
     Active Substance: LACTULOSE
     Indication: CONSTIPATION
     Dosage: UNK
     Route: 065
  5. ARIPIPRAZOLE. [Suspect]
     Active Substance: ARIPIPRAZOLE
     Indication: PRODUCT USED FOR UNKNOWN INDICATION
     Dosage: 15 MILLIGRAM, DAILY, QD
     Route: 065
  6. ZOPICLONE [Suspect]
     Active Substance: ZOPICLONE
     Indication: PRODUCT USED FOR UNKNOWN INDICATION
     Dosage: 7.5 MG, PRN
     Route: 065
  7. SERTRALINE [Suspect]
     Active Substance: SERTRALINE HYDROCHLORIDE
     Indication: PRODUCT USED FOR UNKNOWN INDICATION
     Dosage: 200 MILLIGRAM, MONTHLY, QMO
     Route: 065
  8. ASPIRIN. [Suspect]
     Active Substance: ASPIRIN
     Indication: PRODUCT USED FOR UNKNOWN INDICATION
     Dosage: 75 MILLIGRAM, DAILY, QD
     Route: 065

REACTIONS (2)
  - Haematocrit increased [Not Recovered/Not Resolved]
  - Haemoglobin increased [Not Recovered/Not Resolved]

NARRATIVE: CASE EVENT DATE: 20201223
